FAERS Safety Report 4502670-6 (Version None)
Quarter: 2004Q3

REPORT INFORMATION
  Report Type: 
  Country: None (occurrence: None)
  Receive Date: 20040928
  Receipt Date: 20040608
  Transmission Date: 20050211
  Serious: No
  Sender: FDA-Public Use
  Company Number: 04P-163-0263148-00

PATIENT
  Age: 66 Year
  Sex: Female
  Weight: 77.1115 kg

DRUGS (10)
  1. HUMIRA [Suspect]
     Indication: RHEUMATOID ARTHRITIS
     Dosage: 40 NANGM, 1 IN 2 WK, SUBCUTANEOUS
     Route: 058
     Dates: start: 20040203
  2. METHOTREXATE [Concomitant]
  3. FLUNSOLIDE [Concomitant]
  4. VERAPAMIL [Concomitant]
  5. DIAZIDE [Concomitant]
  6. LEVOTHYROXINE SODIUM [Concomitant]
  7. PANTOPRAZOLE [Concomitant]
  8. CONJUGATED ESTROGEN [Concomitant]
  9. FEXOFENADINE HYDROCHLORIDE [Concomitant]
  10. AMITRIPTYLINE [Concomitant]

REACTIONS (1)
  - ARTHROPOD BITE [None]
